FAERS Safety Report 6171818-2 (Version None)
Quarter: 2009Q2

REPORT INFORMATION
  Report Type: 
  Country: None (occurrence: None)
  Receive Date: 20090429
  Receipt Date: 20090415
  Transmission Date: 20091009
  Serious: Yes (Other)
  Sender: FDA-Public Use
  Company Number: AU-ROCHE-627686

PATIENT
  Age: 56 Year
  Sex: Female

DRUGS (1)
  1. ROACCUTANE [Suspect]
     Indication: ACNE
     Route: 048
     Dates: start: 19940415, end: 19940815

REACTIONS (5)
  - BLINDNESS [None]
  - DERMATITIS [None]
  - DYSPNOEA [None]
  - HYALOSIS ASTEROID [None]
  - HYPERSENSITIVITY [None]
